FAERS Safety Report 5663302-7 (Version None)
Quarter: 2008Q1

REPORT INFORMATION
  Report Type: 
  Country: None (occurrence: None)
  Receive Date: 20080313
  Receipt Date: 20080304
  Transmission Date: 20080703
  Serious: Yes (Death, Hospitalization)
  Sender: FDA-Public Use
  Company Number: GB-ELI_LILLY_AND_COMPANY-GB200801004070

PATIENT
  Age: 74 Year
  Sex: Female

DRUGS (6)
  1. BYETTA [Suspect]
     Dosage: 10 UG, UNKNOWN
     Route: 058
     Dates: start: 20071229, end: 20080106
  2. GLICLAZIDE [Concomitant]
     Dosage: 100 MG, 2/D
     Route: 065
  3. OMEPRAZOLE [Concomitant]
     Dosage: 40 MG, DAILY (1/D)
  4. FUROSEMIDE [Concomitant]
  5. CANDESARTAN CILEXETIL [Concomitant]
     Indication: HYPERTENSION
  6. GLUCOBAY [Concomitant]

REACTIONS (2)
  - DEATH [None]
  - RENAL FAILURE ACUTE [None]
